FAERS Safety Report 4786304-1 (Version None)
Quarter: 2005Q3

REPORT INFORMATION
  Report Type: 
  Country: None (occurrence: None)
  Receive Date: 20050927
  Receipt Date: 20050822
  Transmission Date: 20060218
  Serious: No
  Sender: FDA-Public Use
  Company Number: USA0508106074

PATIENT
  Age: 41 Year
  Sex: Female
  Weight: 77 kg

DRUGS (4)
  1. STRATTERA [Suspect]
     Dosage: 40 MG DAY
     Dates: start: 20050101
  2. VITAMINS [Concomitant]
  3. VALTREX [Concomitant]
  4. GLUCOSAMINE [Concomitant]

REACTIONS (3)
  - ENERGY INCREASED [None]
  - NAUSEA [None]
  - PSYCHOMOTOR HYPERACTIVITY [None]
